FAERS Safety Report 18455619 (Version 2)
Quarter: 2020Q4

REPORT INFORMATION
  Report Type: Spontaneous
  Country: US (occurrence: US)
  Receive Date: 20201102
  Receipt Date: 20201107
  Transmission Date: 20210114
  Serious: No
  Sender: FDA-Public Use
  Company Number: US-CELGENEUS-USA-20201006607

PATIENT
  Age: 37 Year
  Sex: Female

DRUGS (1)
  1. ZEPOSIA [Suspect]
     Active Substance: OZANIMOD HYDROCHLORIDE
     Indication: MULTIPLE SCLEROSIS
     Dosage: .92 MILLIGRAM
     Route: 048
     Dates: start: 20201004, end: 20201018

REACTIONS (6)
  - Asthenia [Recovered/Resolved]
  - Blood potassium decreased [Recovered/Resolved]
  - Supraventricular tachycardia [Recovered/Resolved]
  - Energy increased [Recovered/Resolved]
  - Hypertension [Recovered/Resolved]
  - Pain in extremity [Recovered/Resolved]

NARRATIVE: CASE EVENT DATE: 20201004
